FAERS Safety Report 23959767 (Version 5)
Quarter: 2025Q1

REPORT INFORMATION
  Report Type: Report from Study
  Country: US (occurrence: US)
  Receive Date: 20240611
  Receipt Date: 20250321
  Transmission Date: 20250409
  Serious: Yes (Hospitalization, Other)
  Sender: TAKEDA
  Company Number: US-TAKEDA-2024TUS017735

PATIENT
  Age: 58 Year
  Sex: Female

DRUGS (3)
  1. LANADELUMAB [Suspect]
     Active Substance: LANADELUMAB
     Indication: Immune system disorder
     Dosage: 300 MILLIGRAM, Q2WEEKS
     Dates: start: 202402
  2. LANADELUMAB [Suspect]
     Active Substance: LANADELUMAB
  3. LANADELUMAB [Suspect]
     Active Substance: LANADELUMAB

REACTIONS (12)
  - Breast cancer [Unknown]
  - Neoplasm malignant [Unknown]
  - Pneumothorax [Unknown]
  - Oedema [Unknown]
  - Thrombosis [Unknown]
  - Hereditary angioedema [Unknown]
  - Respiratory failure [Unknown]
  - Weight decreased [Unknown]
  - Fall [Unknown]
  - Joint injury [Unknown]
  - Weight increased [Unknown]
  - Peripheral swelling [Unknown]

NARRATIVE: CASE EVENT DATE: 20250312
